FAERS Safety Report 5505402-8 (Version None)
Quarter: 2007Q4

REPORT INFORMATION
  Report Type: 
  Country: None (occurrence: None)
  Receive Date: 20071102
  Receipt Date: 20061031
  Transmission Date: 20080405
  Serious: Yes (Hospitalization)
  Sender: FDA-Public Use
  Company Number: SE-MERCK-0611SWE00003B1

PATIENT
  Sex: Female
  Weight: 2 kg

DRUGS (3)
  1. CLINORIL [Suspect]
     Indication: NEPHROLITHIASIS
     Route: 064
  2. HYDROMORPHONE HYDROCHLORIDE [Concomitant]
     Indication: NEPHROLITHIASIS
     Route: 064
  3. DICLOFENAC SODIUM [Concomitant]
     Indication: NEPHROLITHIASIS
     Route: 064

REACTIONS (1)
  - DUCTUS ARTERIOSUS PREMATURE CLOSURE [None]
